FAERS Safety Report 4911148-7 (Version None)
Quarter: 2006Q1

REPORT INFORMATION
  Report Type: 
  Country: None (occurrence: None)
  Receive Date: 20060209
  Receipt Date: 20060123
  Transmission Date: 20060701
  Serious: Yes (Hospitalization)
  Sender: FDA-Public Use
  Company Number: FR200601004130

PATIENT
  Age: 59 Year
  Sex: Female

DRUGS (12)
  1. FORTEO [Suspect]
     Indication: OSTEOPOROSIS
     Dosage: 20 UG, DAILY (1/D), SUBCUTANEOUS
     Route: 058
     Dates: start: 20050926
  2. FORTEO [Concomitant]
  3. FORLAX (MACROGOL) [Concomitant]
  4. EUPANTOL (PANTOPRAZOLE) [Concomitant]
  5. MEBEVERINE (MEBEVERINE) [Concomitant]
  6. SULFARLEM (ANETHOLE TRITHIONE) [Concomitant]
  7. METEOSPASMYL (ALVERINE CITRATE, DL-METHIONINE) [Concomitant]
  8. MOTILIUM ^SANOFI WINTHROP^ (DOMPERIDONE MALEATE) [Concomitant]
  9. GINKOR (GINKGO BILOBA EXTRACT, TROXERUTIN) [Concomitant]
  10. NEURONTIN [Concomitant]
  11. ATARAX [Concomitant]
  12. NOCTAMIDE (LORMETAZEPAM) [Concomitant]

REACTIONS (2)
  - ABDOMINAL PAIN [None]
  - WEIGHT INCREASED [None]
